FAERS Safety Report 19156799 (Version 1)
Quarter: 2021Q2

REPORT INFORMATION
  Report Type: Spontaneous
  Country: IN (occurrence: IN)
  Receive Date: 20210420
  Receipt Date: 20210420
  Transmission Date: 20210717
  Serious: Yes (Hospitalization)
  Sender: FDA-Public Use
  Company Number: IN-CADILA HEALTHCARE LIMITED-IN-ZYDUS-064658

PATIENT

DRUGS (2)
  1. ETORICOXIB. [Suspect]
     Active Substance: ETORICOXIB
     Indication: ARTHRALGIA
     Dosage: 90 MILLIGRAM, QD
     Route: 065
  2. METHOTREXATE. [Suspect]
     Active Substance: METHOTREXATE
     Indication: PSORIASIS
     Dosage: 15 MILLIGRAM (SINGLE DOSE)
     Route: 065

REACTIONS (10)
  - Ulcer [Recovering/Resolving]
  - Diarrhoea [Recovering/Resolving]
  - Toxicity to various agents [Recovering/Resolving]
  - Nausea [Recovering/Resolving]
  - Renal impairment [Recovered/Resolved]
  - Psoriasis [Recovering/Resolving]
  - Pancytopenia [Recovering/Resolving]
  - Vomiting [Recovering/Resolving]
  - Condition aggravated [Recovering/Resolving]
  - Drug interaction [Recovering/Resolving]
